FAERS Safety Report 13619838 (Version 2)
Quarter: 2017Q2

REPORT INFORMATION
  Report Type: Spontaneous
  Country: FR (occurrence: FR)
  Receive Date: 20170606
  Receipt Date: 20170615
  Transmission Date: 20170830
  Serious: Yes (Other)
  Sender: FDA-Public Use
  Company Number: FR-ASTRAZENECA-2017SE58401

PATIENT
  Sex: Male

DRUGS (1)
  1. TAGRISSO [Suspect]
     Active Substance: OSIMERTINIB
     Indication: LUNG NEOPLASM MALIGNANT
     Route: 048

REACTIONS (2)
  - EGFR gene mutation [Not Recovered/Not Resolved]
  - Malignant neoplasm progression [Not Recovered/Not Resolved]

NARRATIVE: CASE EVENT DATE: 201705
